FAERS Safety Report 9722899 (Version 3)
Quarter: 2014Q1

REPORT INFORMATION
  Report Type: Report from Study
  Country: CA (occurrence: CA)
  Receive Date: 20131202
  Receipt Date: 20140121
  Transmission Date: 20141002
  Serious: Yes (Hospitalization, Other)
  Sender: FDA-Public Use
  Company Number: CA-ASTELLAS-2013US009670

PATIENT
  Age: 35 Year
  Sex: Female

DRUGS (14)
  1. TACROLIMUS MR4 CAPSULES [Suspect]
     Indication: RENAL TRANSPLANT
     Dosage: 11.5 MG, UID/QD
     Route: 048
     Dates: start: 20130320, end: 20130907
  2. TACROLIMUS MR4 CAPSULES [Suspect]
     Dosage: 9 MG, UID/QD
     Route: 048
     Dates: start: 20130908, end: 20130910
  3. TACROLIMUS MR4 CAPSULES [Suspect]
     Dosage: 4.5 MG, UID/QD
     Route: 048
     Dates: start: 20130911, end: 20130914
  4. TACROLIMUS MR4 CAPSULES [Suspect]
     Dosage: 3 MG, UID/QD
     Route: 048
     Dates: start: 20130919, end: 20130927
  5. TACROLIMUS MR4 CAPSULES [Suspect]
     Dosage: 1.5 MG, UID/QD
     Route: 048
     Dates: start: 20130928, end: 20131015
  6. TACROLIMUS MR4 CAPSULES [Suspect]
     Dosage: 5 MG, UID/QD
     Dates: start: 20131016
  7. MYFORTIC [Concomitant]
     Indication: RENAL TRANSPLANT
     Dosage: 120 MG, BID
     Route: 048
     Dates: start: 20130320, end: 20130909
  8. MYFORTIC [Concomitant]
     Dosage: 720 MG, UNKNOWN/D
     Route: 048
     Dates: start: 20130910
  9. PREDNISONE [Concomitant]
     Indication: RENAL TRANSPLANT
     Dosage: 5 MG, UID/QD
     Route: 048
     Dates: start: 20130323
  10. ATORVASTATIN [Concomitant]
     Indication: PRODUCT USED FOR UNKNOWN INDICATION
     Dosage: 20 MG, UID/QD
     Route: 048
  11. SYNTHROID [Concomitant]
     Indication: PRODUCT USED FOR UNKNOWN INDICATION
     Dosage: 0.125 MG, UID/QD
     Route: 048
  12. PROVERA [Concomitant]
     Indication: PRODUCT USED FOR UNKNOWN INDICATION
     Dosage: 2.5 MG, UID/QD
     Route: 048
  13. VITAMIN D                          /00107901/ [Concomitant]
     Indication: PRODUCT USED FOR UNKNOWN INDICATION
     Dosage: 800 U, UID/QD
     Route: 048
  14. MULTIVITAMINS, COMBINATIONS [Concomitant]
     Indication: PRODUCT USED FOR UNKNOWN INDICATION
     Dosage: 1 TAB, UID/QD
     Route: 048

REACTIONS (6)
  - Bronchopulmonary aspergillosis [Recovered/Resolved]
  - Renal failure acute [Recovering/Resolving]
  - Cytomegalovirus viraemia [Recovered/Resolved]
  - Clostridium difficile infection [Recovered/Resolved]
  - Liver function test abnormal [Recovered/Resolved]
  - Anaemia [Not Recovered/Not Resolved]
